FAERS Safety Report 25078876 (Version 4)
Quarter: 2025Q2

REPORT INFORMATION
  Report Type: Report from Study
  Country: CA (occurrence: CA)
  Receive Date: 20250314
  Receipt Date: 20250626
  Transmission Date: 20250716
  Serious: Yes (Other)
  Sender: NOVARTIS
  Company Number: CA-002147023-NVSC2025CA041583

PATIENT
  Age: 51 Year
  Sex: Male

DRUGS (2)
  1. COSENTYX [Suspect]
     Active Substance: SECUKINUMAB
     Indication: Ankylosing spondylitis
     Dosage: 150 MG, QW (WEEKS 0, 1, 2, 3, AND 4,)
     Route: 058
     Dates: start: 20250217
  2. COSENTYX [Suspect]
     Active Substance: SECUKINUMAB
     Dosage: 150 MG, QMO
     Route: 058

REACTIONS (8)
  - Lower respiratory tract infection [Not Recovered/Not Resolved]
  - Decreased immune responsiveness [Unknown]
  - Influenza [Unknown]
  - Rhinorrhoea [Unknown]
  - Chest discomfort [Unknown]
  - Dyspnoea [Unknown]
  - Productive cough [Unknown]
  - Pyrexia [Unknown]
